FAERS Safety Report 6727546-5 (Version None)
Quarter: 2010Q2

REPORT INFORMATION
  Report Type: 
  Country: None (occurrence: None)
  Receive Date: 20100517
  Receipt Date: 20100504
  Transmission Date: 20101027
  Serious: Yes (Other)
  Sender: FDA-Public Use
  Company Number: PHHY2010DK25196

PATIENT
  Sex: Female

DRUGS (3)
  1. TEGRETOL [Suspect]
     Dosage: UNK
     Route: 048
  2. TRUXAL [Suspect]
     Route: 048
  3. PROZIL [Suspect]
     Route: 048

REACTIONS (3)
  - HEART RATE INCREASED [None]
  - SUPRAVENTRICULAR TACHYCARDIA [None]
  - SYNCOPE [None]
